FAERS Safety Report 8824438 (Version 2)
Quarter: 2012Q4

REPORT INFORMATION
  Report Type: 
  Country: US (occurrence: US)
  Receive Date: 20121004
  Receipt Date: 20121022
  Transmission Date: 20130627
  Serious: Yes (Hospitalization)
  Sender: FDA-Public Use
  Company Number: US-BAYER-2012-101548

PATIENT
  Age: 19 Year
  Sex: Female

DRUGS (5)
  1. YAZ [Suspect]
     Indication: POLYCYSTIC OVARIES
     Dosage: UNK
     Dates: start: 200509, end: 200808
  2. YAZ [Suspect]
     Indication: DYSMENORRHOEA
  3. YAZ [Suspect]
     Indication: MENORRHAGIA
  4. YASMIN [Suspect]
     Dosage: UNK
     Dates: start: 200509, end: 200808
  5. LEXAPRO [Concomitant]
     Indication: ANXIETY

REACTIONS (3)
  - Pulmonary embolism [None]
  - Pleuritic pain [None]
  - Dyspnoea [None]
